FAERS Safety Report 4341072-2 (Version None)
Quarter: 2004Q2

REPORT INFORMATION
  Report Type: 
  Country: None (occurrence: None)
  Receive Date: 20040419
  Receipt Date: 20040407
  Transmission Date: 20050107
  Serious: Yes (Hospitalization)
  Sender: FDA-Public Use
  Company Number: CA-BRISTOL-MYERS SQUIBB COMPANY-12555272

PATIENT
  Age: 52 Year
  Sex: Male

DRUGS (8)
  1. ABATACEPT [Concomitant]
     Indication: RHEUMATOID ARTHRITIS
     Route: 042
     Dates: start: 20030508
  2. METHOTREXATE [Suspect]
     Dosage: WAS ON 15MG/WEEK FROM NOV-1998 TO 17-MAR-2003 WHEN DOSE WAS INCREASED
     Dates: start: 19981101
  3. VIOXX [Concomitant]
     Route: 048
     Dates: start: 20030130
  4. LIPITOR [Concomitant]
     Route: 048
     Dates: start: 20021101
  5. FOLIC ACID [Concomitant]
     Route: 048
     Dates: start: 20030130
  6. TYLENOL W/ CODEINE NO. 3 [Concomitant]
     Dosage: 2 EVERY 4 HOURS AS NESS.
     Route: 048
     Dates: start: 20011001
  7. VITAMINS + MINERALS [Concomitant]
     Dosage: DOSAGE FORM = TABLET
     Dates: start: 20030425
  8. CELESTODERM [Concomitant]
     Dosage: 0.1% TWICE A DAY
     Dates: start: 20040130, end: 20040218

REACTIONS (3)
  - ABSCESS JAW [None]
  - LYMPHADENOPATHY [None]
  - STREPTOCOCCAL INFECTION [None]
